FAERS Safety Report 9801432 (Version 1)
Quarter: 2014Q1

REPORT INFORMATION
  Report Type: Spontaneous
  Country: US (occurrence: US)
  Receive Date: 20140107
  Receipt Date: 20140107
  Transmission Date: 20141002
  Serious: No
  Sender: FDA-Public Use
  Company Number: US-009507513-1401USA001521

PATIENT
  Sex: Female

DRUGS (1)
  1. SAPHRIS [Suspect]
     Dosage: 1 DF, QD
     Route: 060

REACTIONS (2)
  - Vomiting [Recovered/Resolved]
  - Dizziness [Recovered/Resolved]
